FAERS Safety Report 6386916-8 (Version None)
Quarter: 2009Q4

REPORT INFORMATION
  Report Type: 
  Country: None (occurrence: None)
  Receive Date: 20091002
  Receipt Date: 20090924
  Transmission Date: 20100525
  Serious: No
  Sender: FDA-Public Use
  Company Number: B0595133A

PATIENT
  Age: 12 Year
  Sex: Male

DRUGS (1)
  1. RELENZA [Suspect]
     Indication: DRUG USE FOR UNKNOWN INDICATION
     Dosage: 40MG PER DAY
     Route: 055
     Dates: start: 20090924, end: 20090924

REACTIONS (2)
  - NO ADVERSE EVENT [None]
  - OVERDOSE [None]
